FAERS Safety Report 20157898 (Version 2)
Quarter: 2022Q3

REPORT INFORMATION
  Report Type: Report from Study
  Country: CA (occurrence: CA)
  Receive Date: 20211207
  Receipt Date: 20220802
  Transmission Date: 20221026
  Serious: No
  Sender: FDA-Public Use
  Company Number: CA-KARYOPHARM-2021KPT001489

PATIENT
  Age: 73 Year
  Sex: Male

DRUGS (5)
  1. SELINEXOR [Suspect]
     Active Substance: SELINEXOR
     Indication: Plasma cell myeloma
     Dosage: UNK UNK, 2X/WEEK
     Route: 048
     Dates: start: 20211119, end: 20220308
  2. DEXAMETHASONE [Concomitant]
     Active Substance: DEXAMETHASONE
     Indication: Plasma cell myeloma
     Dosage: UNK
  3. ONDANSETRON HYDROCHLORIDE [Concomitant]
     Active Substance: ONDANSETRON HYDROCHLORIDE
     Indication: Vomiting
     Dosage: 8 MG, TID FOR DAYS 1-5 EACH WEEK
     Route: 048
  4. OLANZAPINE [Concomitant]
     Active Substance: OLANZAPINE
     Indication: Vomiting
     Dosage: 2.5 MG, QD
     Route: 048
  5. SENNOSIDES A AND B [Concomitant]
     Active Substance: SENNOSIDES A AND B
     Indication: Constipation
     Dosage: 1 DOSAGE FORM, TID
     Route: 048

REACTIONS (8)
  - Hiccups [Recovered/Resolved]
  - Headache [Unknown]
  - Vomiting [Recovered/Resolved]
  - Constipation [Not Recovered/Not Resolved]
  - Decreased appetite [Unknown]
  - Nausea [Unknown]
  - Dizziness [Not Recovered/Not Resolved]
  - Weight decreased [Unknown]

NARRATIVE: CASE EVENT DATE: 20211101
